FAERS Safety Report 10334645 (Version 1)
Quarter: 2014Q3

REPORT INFORMATION
  Report Type: Spontaneous
  Country: US (occurrence: US)
  Receive Date: 20140723
  Receipt Date: 20140723
  Transmission Date: 20150326
  Serious: Yes (Other)
  Sender: FDA-Public Use
  Company Number: US-ENDO PHARMACEUTICALS INC.-LEVE20140010

PATIENT
  Sex: Male

DRUGS (1)
  1. LEVETIRACETAM ORAL SOLUTION 100 MG/ML [Suspect]
     Active Substance: LEVETIRACETAM
     Indication: CONVULSION
     Route: 048
     Dates: start: 20140613

REACTIONS (3)
  - Convulsion [Not Recovered/Not Resolved]
  - Incorrect product storage [Unknown]
  - Drug ineffective [Not Recovered/Not Resolved]

NARRATIVE: CASE EVENT DATE: 2014
